FAERS Safety Report 5691971-4 (Version None)
Quarter: 2008Q2

REPORT INFORMATION
  Report Type: 
  Country: None (occurrence: None)
  Receive Date: 20080402
  Receipt Date: 20080319
  Transmission Date: 20081010
  Serious: Yes (Hospitalization)
  Sender: FDA-Public Use
  Company Number: US-JNJFOC-20080303044

PATIENT
  Sex: Male
  Weight: 90.72 kg

DRUGS (13)
  1. FENTANYL TRANSDERMAL SYSTEM [Suspect]
     Indication: PAIN
     Dosage: AS NEEDED
     Route: 062
  2. NEURONTIN [Concomitant]
     Indication: MUSCLE RELAXANT THERAPY
     Route: 065
  3. LOTREL [Concomitant]
     Indication: HYPERTENSION
     Dosage: 5/10MG OR 5/20MG
     Route: 065
  4. ASACOL [Concomitant]
     Indication: CROHN'S DISEASE
     Route: 048
  5. NOVOLOG [Concomitant]
     Indication: DIABETES MELLITUS
     Dosage: 30-40 UNITS, TID SLIDING SCALE
     Route: 058
  6. ULTRAM ER [Concomitant]
     Indication: PAIN
     Route: 048
  7. LANTUS [Concomitant]
     Indication: DIABETES MELLITUS
     Dosage: 20 UNITS AT BEDTIME
     Route: 058
  8. SOMA [Concomitant]
     Indication: MUSCLE RELAXANT THERAPY
     Route: 065
  9. COREG [Concomitant]
     Indication: HYPERTENSION
     Route: 065
  10. INSULIN [Concomitant]
     Route: 065
  11. NOVOLOG [Concomitant]
     Dosage: 45 UNITS QAC
     Route: 065
  12. CYMBALTA [Concomitant]
     Route: 065
  13. PEPCID [Concomitant]
     Dosage: AS NEEDED
     Route: 065

REACTIONS (22)
  - BLOOD CHOLESTEROL INCREASED [None]
  - CERVICAL SPINAL STENOSIS [None]
  - ELECTROCARDIOGRAM ABNORMAL [None]
  - EPISTAXIS [None]
  - FALL [None]
  - FLUSHING [None]
  - HEADACHE [None]
  - HYPERHIDROSIS [None]
  - INAPPROPRIATE SCHEDULE OF DRUG ADMINISTRATION [None]
  - INTERVERTEBRAL DISC PROTRUSION [None]
  - LOSS OF CONSCIOUSNESS [None]
  - MELAENA [None]
  - MUSCULAR WEAKNESS [None]
  - NECK INJURY [None]
  - NECK PAIN [None]
  - PAIN IN EXTREMITY [None]
  - PALPITATIONS [None]
  - RECTAL HAEMORRHAGE [None]
  - SENSORY LOSS [None]
  - SYNCOPE [None]
  - VISION BLURRED [None]
  - VISUAL DISTURBANCE [None]
